FAERS Safety Report 19476064 (Version 15)
Quarter: 2022Q4

REPORT INFORMATION
  Report Type: Spontaneous
  Country: US (occurrence: US)
  Receive Date: 20210630
  Receipt Date: 20221223
  Transmission Date: 20230113
  Serious: Yes (Hospitalization, Other)
  Sender: FDA-Public Use
  Company Number: US-BIOVITRUM-2021US4733

PATIENT
  Age: 58 Year
  Sex: Female

DRUGS (15)
  1. KINERET [Suspect]
     Active Substance: ANAKINRA
     Indication: Rheumatoid arthritis
     Dates: start: 20210505
  2. KINERET [Suspect]
     Active Substance: ANAKINRA
     Dates: start: 20210504
  3. KINERET [Suspect]
     Active Substance: ANAKINRA
     Dates: start: 202105
  4. METHOCARBAMOL [Concomitant]
     Active Substance: METHOCARBAMOL
  5. ZOFRAN [Concomitant]
     Active Substance: ONDANSETRON HYDROCHLORIDE
  6. TYLENOL [Concomitant]
     Active Substance: ACETAMINOPHEN
     Dosage: TID
  7. BENADRYL [Concomitant]
     Active Substance: DIPHENHYDRAMINE HYDROCHLORIDE
     Indication: Hypersensitivity
  8. LEVOTHYROXINE [Concomitant]
     Active Substance: LEVOTHYROXINE
  9. HYDRAZINE SULFATE [Concomitant]
     Active Substance: HYDRAZINE SULFATE
     Indication: Pruritus
  10. AMITRIPTYLINE [Concomitant]
     Active Substance: AMITRIPTYLINE
     Indication: Irritable bowel syndrome
  11. HYDRAZINE SULFATE [Concomitant]
     Active Substance: HYDRAZINE SULFATE
     Indication: Urticaria
  12. LIDOCAINE VISCOUS [Concomitant]
     Active Substance: LIDOCAINE HYDROCHLORIDE
  13. XARELTO [Suspect]
     Active Substance: RIVAROXABAN
     Indication: Antiphospholipid syndrome
  14. GLIPIZIDE [Concomitant]
     Active Substance: GLIPIZIDE
  15. SIMVASTATIN [Concomitant]
     Active Substance: SIMVASTATIN

REACTIONS (36)
  - Occipital neuralgia [Unknown]
  - Intervertebral disc degeneration [Unknown]
  - Paraesthesia [Unknown]
  - Hypoaesthesia [Unknown]
  - Cervical spinal stenosis [Unknown]
  - Lumbar spinal stenosis [Unknown]
  - Bile duct stenosis [Unknown]
  - Deep vein thrombosis [Unknown]
  - Loss of consciousness [Unknown]
  - Somnolence [Unknown]
  - Ulna fracture [Unknown]
  - Tremor [Unknown]
  - Anxiety [Unknown]
  - Palpitations [Recovered/Resolved]
  - Flushing [Unknown]
  - Hypotension [Recovered/Resolved]
  - Joint swelling [Not Recovered/Not Resolved]
  - Fall [Unknown]
  - Abdominal pain [Unknown]
  - Pain [Unknown]
  - Endometrial thickening [Unknown]
  - Menopausal symptoms [Unknown]
  - Sleep disorder [Unknown]
  - Abdominal adhesions [Unknown]
  - Abdominal distension [Unknown]
  - Peripheral swelling [Unknown]
  - Weight decreased [Unknown]
  - Contusion [Unknown]
  - Depression [Unknown]
  - Arthralgia [Unknown]
  - Musculoskeletal stiffness [Unknown]
  - Chromaturia [Unknown]
  - Injection site bruising [Unknown]
  - Product dose omission in error [Unknown]
  - Product dose omission issue [Unknown]
  - Product quality issue [Unknown]

NARRATIVE: CASE EVENT DATE: 20210701
